FAERS Safety Report 24389193 (Version 1)
Quarter: 2024Q4

REPORT INFORMATION
  Report Type: Spontaneous
  Country: CN (occurrence: CN)
  Receive Date: 20241002
  Receipt Date: 20241002
  Transmission Date: 20250115
  Serious: Yes (Other)
  Sender: PFIZER
  Company Number: CN-PFIZER INC-PV202400126970

PATIENT
  Age: 14 Year
  Sex: Female

DRUGS (2)
  1. CYTARABINE [Suspect]
     Active Substance: CYTARABINE
     Indication: Acute myeloid leukaemia
     Dosage: 3 G, 2X/DAY
     Route: 041
     Dates: start: 20240913, end: 20240915
  2. METHOTREXATE SODIUM [Concomitant]
     Active Substance: METHOTREXATE SODIUM
     Indication: Acute myeloid leukaemia
     Dosage: 12.5 MG, 1X/DAY
     Route: 037
     Dates: start: 20240913, end: 20240913

REACTIONS (5)
  - Pyrexia [Recovered/Resolved]
  - Temperature intolerance [Unknown]
  - Chills [Unknown]
  - Infection [Unknown]
  - C-reactive protein increased [Unknown]

NARRATIVE: CASE EVENT DATE: 20240901
